FAERS Safety Report 17546802 (Version 1)
Quarter: 2020Q1

REPORT INFORMATION
  Report Type: Spontaneous
  Country: US (occurrence: US)
  Receive Date: 20200316
  Receipt Date: 20200316
  Transmission Date: 20200409
  Serious: No
  Sender: FDA-Public Use
  Company Number: US-SA-2020SA065245

PATIENT
  Age: 42 Year
  Sex: Male

DRUGS (15)
  1. LATANOPROST. [Concomitant]
     Active Substance: LATANOPROST
     Dosage: DROPS
  2. ZANAFLEX [Concomitant]
     Active Substance: TIZANIDINE HYDROCHLORIDE
  3. NEPAFENAC [Concomitant]
     Active Substance: NEPAFENAC
  4. MURO 128 [Concomitant]
     Active Substance: SODIUM CHLORIDE
     Dosage: DROPS
  5. ATROPINE SULFATE. [Concomitant]
     Active Substance: ATROPINE SULFATE
  6. FLOMAX [Concomitant]
     Active Substance: TAMSULOSIN HYDROCHLORIDE
  7. VITAMIN D [ERGOCALCIFEROL] [Concomitant]
     Active Substance: ERGOCALCIFEROL
  8. PREDNISOLONE. [Concomitant]
     Active Substance: PREDNISOLONE
  9. OLANZAPINE AND FLUOXETINE [Concomitant]
     Active Substance: FLUOXETINE HYDROCHLORIDE\OLANZAPINE
  10. AUBAGIO [Suspect]
     Active Substance: TERIFLUNOMIDE
     Indication: MULTIPLE SCLEROSIS
     Dosage: 14 MG, QD
     Dates: start: 2017
  11. SODIUM CHLORIDE. [Concomitant]
     Active Substance: SODIUM CHLORIDE
  12. MULTIVITAMIN [ASCORBIC ACID;CALCIUM CARBONATE;CYANOCOBALAMIN;NICOTINAM [Concomitant]
  13. GABAPENTIN. [Concomitant]
     Active Substance: GABAPENTIN
  14. SIMVASTATIN. [Concomitant]
     Active Substance: SIMVASTATIN
  15. MSM [METHYLSULFONYLMETHANE] [Concomitant]

REACTIONS (6)
  - Condition aggravated [Unknown]
  - Constipation [Unknown]
  - Nausea [Unknown]
  - Gastrointestinal hypermotility [Unknown]
  - Decreased interest [Unknown]
  - Muscle spasms [Unknown]

NARRATIVE: CASE EVENT DATE: 2019
